FAERS Safety Report 6143585-X (Version None)
Quarter: 2009Q2

REPORT INFORMATION
  Report Type: 
  Country: None (occurrence: None)
  Receive Date: 20090403
  Receipt Date: 20090402
  Transmission Date: 20091009
  Serious: Yes (Hospitalization)
  Sender: FDA-Public Use
  Company Number: ES-ROXANE LABORATORIES, INC.-2009-RO-00328RO

PATIENT
  Age: 74 Year
  Sex: Female

DRUGS (2)
  1. MEGESTROL ACETATE [Suspect]
     Indication: HORMONE THERAPY
     Dosage: 320MG
  2. ACTOCORTIN [Concomitant]
     Indication: ADRENAL INSUFFICIENCY

REACTIONS (2)
  - ADRENAL INSUFFICIENCY [None]
  - PERICARDIAL EFFUSION [None]
